FAERS Safety Report 7425996-5 (Version None)
Quarter: 2011Q2

REPORT INFORMATION
  Report Type: 
  Country: None (occurrence: None)
  Receive Date: 20110412
  Receipt Date: 20110329
  Transmission Date: 20111010
  Serious: Yes (Hospitalization, Other)
  Sender: FDA-Public Use
  Company Number: 2011SP014690

PATIENT
  Sex: Female

DRUGS (2)
  1. PEG-INTRON [Suspect]
     Indication: HEPATITIS
     Dates: start: 20100620, end: 20101129
  2. RIBASPHERE [Suspect]
     Indication: HEPATITIS
     Dates: start: 20100620, end: 20101129

REACTIONS (11)
  - OROPHARYNGEAL PAIN [None]
  - MASS [None]
  - HEAD INJURY [None]
  - VIRAL LOAD INCREASED [None]
  - SPEECH DISORDER [None]
  - WEIGHT DECREASED [None]
  - LOSS OF CONSCIOUSNESS [None]
  - HAIR GROWTH ABNORMAL [None]
  - BACTERIAL INFECTION [None]
  - MACULAR DEGENERATION [None]
  - WEIGHT FLUCTUATION [None]
